FAERS Safety Report 6363321-1 (Version None)
Quarter: 2009Q3

REPORT INFORMATION
  Report Type: 
  Country: None (occurrence: None)
  Receive Date: 20090919
  Receipt Date: 20090623
  Transmission Date: 20100115
  Serious: No
  Sender: FDA-Public Use
  Company Number: US-ABBOTT-09P-163-0581532-00

PATIENT
  Sex: Male
  Weight: 80.812 kg

DRUGS (3)
  1. HUMIRA [Suspect]
     Indication: RHEUMATOID ARTHRITIS
     Dates: start: 20080901, end: 20081101
  2. HUMIRA [Suspect]
     Dates: start: 20081101, end: 20090401
  3. HUMIRA [Suspect]
     Dates: start: 20090401

REACTIONS (3)
  - DRUG INEFFECTIVE [None]
  - JOINT SWELLING [None]
  - RHEUMATOID ARTHRITIS [None]
